FAERS Safety Report 15742939 (Version 1)
Quarter: 2018Q4

REPORT INFORMATION
  Report Type: Report from Study
  Country: AU (occurrence: AU)
  Receive Date: 20181220
  Receipt Date: 20181220
  Transmission Date: 20190205
  Serious: Yes (Hospitalization, Other)
  Sender: FDA-Public Use
  Company Number: AU-MYLANLABS-2018M1088752

PATIENT
  Age: 46 Year
  Sex: Male

DRUGS (2)
  1. CLOZARIL [Suspect]
     Active Substance: CLOZAPINE
     Indication: SCHIZOPHRENIA
     Dosage: 450 MILLIGRAM
     Route: 048
     Dates: start: 20110314
  2. CLOZARIL [Suspect]
     Active Substance: CLOZAPINE
     Dosage: 475 MILLIGRAM
     Route: 048
     Dates: start: 20110314

REACTIONS (3)
  - White blood cell count increased [Not Recovered/Not Resolved]
  - Neutrophil count increased [Unknown]
  - Gastric cancer [Unknown]

NARRATIVE: CASE EVENT DATE: 20181120
